FAERS Safety Report 9307687 (Version 3)
Quarter: 2013Q3

REPORT INFORMATION
  Report Type: Spontaneous
  Country: US (occurrence: US)
  Receive Date: 20130524
  Receipt Date: 20130827
  Transmission Date: 20140515
  Serious: Yes (Hospitalization)
  Sender: FDA-Public Use
  Company Number: US-BAYER-2013-064510

PATIENT
  Age: 28 Year
  Sex: Female
  Weight: 86.17 kg

DRUGS (19)
  1. YAZ [Suspect]
     Dosage: UNK
     Dates: start: 2009, end: 201002
  2. YASMIN [Suspect]
     Dosage: UNK
     Dates: start: 200907, end: 201002
  3. OCELLA [Suspect]
     Dosage: UNK
     Dates: start: 200907, end: 201002
  4. SERTRALINE [Concomitant]
     Dosage: 50 MG, UNK
     Dates: start: 20091128
  5. SERTRALINE [Concomitant]
     Dosage: 50 MG, UNK
     Dates: start: 20091229
  6. SERTRALINE [Concomitant]
     Dosage: 50 MG, UNK
     Dates: start: 20100129
  7. CLONAZEPAM [Concomitant]
     Indication: ANXIETY
     Dosage: 0.5 MG, UNK
     Dates: start: 20091128
  8. CLONAZEPAM [Concomitant]
     Indication: ANXIETY
     Dosage: 0.5 MG, UNK
     Dates: start: 20090213
  9. CLONAZEPAM [Concomitant]
     Indication: ANXIETY
     Dosage: UNK
     Dates: start: 200606
  10. ZOLOFT [Concomitant]
     Indication: DEPRESSION
     Dosage: UNK
     Dates: start: 200606
  11. ADVIL [Concomitant]
  12. ALEVE [Concomitant]
  13. EXCEDRIN [CAFFEINE,PARACETAMOL] [Concomitant]
  14. ADVAIR [Concomitant]
  15. MOTRIN [Concomitant]
  16. MECLIZINE [Concomitant]
  17. NAPROXEN [Concomitant]
     Dosage: UNK
     Dates: start: 2009
  18. IMITREX [Concomitant]
     Dosage: UNK
     Dates: start: 201008
  19. MAXALT [Concomitant]
     Dosage: UNK
     Dates: start: 201008

REACTIONS (6)
  - Cerebrovascular accident [Recovered/Resolved]
  - Cerebrovascular accident [Recovered/Resolved]
  - Intracranial venous sinus thrombosis [Recovered/Resolved]
  - Thrombosis [None]
  - Pain [Recovered/Resolved]
  - Injury [Recovered/Resolved]
